FAERS Safety Report 6328645-2 (Version None)
Quarter: 2009Q3

REPORT INFORMATION
  Report Type: 
  Country: None (occurrence: None)
  Receive Date: 20090824
  Receipt Date: 20090824
  Transmission Date: 20100115
  Serious: Yes (Hospitalization)
  Sender: FDA-Public Use
  Company Number: None

PATIENT
  Age: 63 Year
  Sex: Female
  Weight: 63.2 kg

DRUGS (1)
  1. ORAL CLOFARABINE; 1 MG; GENZYME [Suspect]
     Indication: MYELODYSPLASTIC SYNDROME
     Dosage: 1 MG; Q 10 DAYS; PO
     Route: 048
     Dates: start: 20090724, end: 20090803

REACTIONS (1)
  - KLEBSIELLA INFECTION [None]
